FAERS Safety Report 7493427-5 (Version None)
Quarter: 2011Q2

REPORT INFORMATION
  Report Type: 
  Country: None (occurrence: None)
  Receive Date: 20110512
  Receipt Date: 20110428
  Transmission Date: 20111010
  Serious: Yes (Other)
  Sender: FDA-Public Use
  Company Number: WAES 1104USA04159

PATIENT
  Age: 62 Year
  Sex: Female

DRUGS (1)
  1. SITAGLIPTIN PHOSPHATE [Suspect]
     Indication: TYPE 2 DIABETES MELLITUS
     Dosage: 100 MG, DAILY, PO
     Route: 048
     Dates: start: 20101008, end: 20110409

REACTIONS (2)
  - DIZZINESS [None]
  - VOMITING [None]
